FAERS Safety Report 7565560-0 (Version None)
Quarter: 2011Q2

REPORT INFORMATION
  Report Type: 
  Country: None (occurrence: None)
  Receive Date: 20110615
  Receipt Date: 20110606
  Transmission Date: 20111010
  Serious: Yes (Hospitalization, Other)
  Sender: FDA-Public Use
  Company Number: 2009EN000036

PATIENT
  Sex: Male

DRUGS (1)
  1. ABELCET [Suspect]
     Indication: PRODUCT USED FOR UNKNOWN INDICATION
     Dosage: IV
     Route: 042

REACTIONS (2)
  - TACHYCARDIA [None]
  - BLOOD PRESSURE INCREASED [None]
